FAERS Safety Report 10803378 (Version 1)
Quarter: 2015Q1

REPORT INFORMATION
  Report Type: Spontaneous
  Country: DE (occurrence: DE)
  Receive Date: 20150217
  Receipt Date: 20150217
  Transmission Date: 20150721
  Serious: Yes (Other)
  Sender: FDA-Public Use
  Company Number: DE-TEVA-540961GER

PATIENT
  Age: 36 Year
  Sex: Female

DRUGS (1)
  1. LEVOFLOXACIN-RATIOPHARM 250 MG FILMTABLETTEN [Suspect]
     Active Substance: LEVOFLOXACIN
     Indication: URINARY TRACT INFECTION
     Dosage: 250 MILLIGRAM DAILY;
     Route: 048
     Dates: start: 2015, end: 2015

REACTIONS (4)
  - Central nervous system inflammation [Unknown]
  - Hypoaesthesia [Recovering/Resolving]
  - Monoplegia [Recovering/Resolving]
  - Multiple sclerosis [Unknown]

NARRATIVE: CASE EVENT DATE: 2015
